FAERS Safety Report 19986197 (Version 1)
Quarter: 2021Q4

REPORT INFORMATION
  Report Type: Spontaneous
  Country: GB (occurrence: GB)
  Receive Date: 20211022
  Receipt Date: 20211022
  Transmission Date: 20220303
  Serious: Yes (Death)
  Sender: FDA-Public Use
  Company Number: GB-SHIONOGI, INC-2021000491

PATIENT
  Sex: Female

DRUGS (2)
  1. FETROJA [Suspect]
     Active Substance: CEFIDEROCOL SULFATE TOSYLATE
     Indication: Soft tissue infection
     Dosage: 2 G, TID (STANDARD DOSE)
     Route: 042
  2. FETROJA [Suspect]
     Active Substance: CEFIDEROCOL SULFATE TOSYLATE
     Indication: Skin infection

REACTIONS (1)
  - Death [Fatal]
